FAERS Safety Report 6147990-7 (Version None)
Quarter: 2009Q2

REPORT INFORMATION
  Report Type: 
  Country: None (occurrence: None)
  Receive Date: 20090408
  Receipt Date: 20090326
  Transmission Date: 20091009
  Serious: Yes (Other)
  Sender: FDA-Public Use
  Company Number: JP-ROCHE-616734

PATIENT
  Age: 53 Year
  Sex: Male

DRUGS (5)
  1. CELLCEPT [Suspect]
     Route: 048
     Dates: start: 20070101
  2. MEDROL [Concomitant]
     Route: 048
     Dates: start: 20070101
  3. CYCLOSPORINE [Concomitant]
     Dosage: FORM: ORAL FORMULATION(NOT OTHERWISE SPECIFIED)
     Route: 048
     Dates: start: 20070101
  4. SIMULECT [Concomitant]
     Dosage: FORM: INJECTABLE; ROUTE:  INJECTABLE (NOT OTHERWISE SPECIFIED)
     Route: 050
     Dates: start: 20070101
  5. BREDININ [Concomitant]
     Route: 048
     Dates: start: 20070101

REACTIONS (5)
  - DRUG LEVEL INCREASED [None]
  - EPIDIDYMITIS [None]
  - INFECTION [None]
  - RENAL IMPAIRMENT [None]
  - URINARY BLADDER ATROPHY [None]
